FAERS Safety Report 11536489 (Version 4)
Quarter: 2019Q1

REPORT INFORMATION
  Report Type: Report from Study
  Country: BR (occurrence: BR)
  Receive Date: 20150922
  Receipt Date: 20190322
  Transmission Date: 20190417
  Serious: Yes (Hospitalization, Other)
  Sender: FDA-Public Use
  Company Number: BR-ROCHE-1462220

PATIENT
  Age: 69 Year
  Sex: Male
  Weight: 76 kg

DRUGS (14)
  1. AZUKON [Concomitant]
     Active Substance: GLICLAZIDE
     Indication: RHEUMATIC DISORDER
     Route: 065
  2. AMITRIPTYLINE [Concomitant]
     Active Substance: AMITRIPTYLINE
     Dosage: SLEEP INDUCER
     Route: 065
  3. OMEPRAZOLE. [Concomitant]
     Active Substance: OMEPRAZOLE
     Indication: GASTRIC DISORDER
     Route: 065
  4. LABIRIN [Concomitant]
     Active Substance: BETAHISTINE
     Dosage: SLEEP INDUCER
     Route: 065
  5. MABTHERA [Suspect]
     Active Substance: RITUXIMAB
     Route: 042
     Dates: start: 20140324
  6. GLIFAGE [Concomitant]
     Active Substance: METFORMIN HYDROCHLORIDE
     Indication: DIABETES MELLITUS
     Route: 065
  7. MABTHERA [Suspect]
     Active Substance: RITUXIMAB
     Route: 042
     Dates: start: 20130909
  8. MABTHERA [Suspect]
     Active Substance: RITUXIMAB
     Route: 042
     Dates: start: 20130923
  9. MABTHERA [Suspect]
     Active Substance: RITUXIMAB
     Dosage: ON 20/JUL/2015, MOST RECENT DOSE OF RITUXIMAB WAS RECEIVED.
     Route: 042
     Dates: start: 20140929
  10. MABTHERA [Suspect]
     Active Substance: RITUXIMAB
     Indication: RHEUMATOID ARTHRITIS
     Route: 042
     Dates: start: 20130909
  11. PRELONE [Concomitant]
     Active Substance: PREDNISOLONE
     Indication: RHEUMATIC DISORDER
     Route: 065
  12. DOMPERIDONE [Concomitant]
     Active Substance: DOMPERIDONE
     Indication: RHEUMATIC DISORDER
     Dosage: 1 TABLET IN THE MONING.
     Route: 065
  13. MABTHERA [Suspect]
     Active Substance: RITUXIMAB
     Route: 042
     Dates: start: 20140408
  14. ACETYLSALICYLIC ACID [Concomitant]
     Active Substance: ASPIRIN
     Route: 065

REACTIONS (10)
  - Burning sensation [Unknown]
  - Pain [Unknown]
  - Bedridden [Unknown]
  - Pneumonia [Unknown]
  - Abdominal pain [Unknown]
  - Arterial disorder [Unknown]
  - Retinal detachment [Not Recovered/Not Resolved]
  - Weight increased [Unknown]
  - Diarrhoea [Recovering/Resolving]
  - Pyrexia [Recovered/Resolved]

NARRATIVE: CASE EVENT DATE: 20141110
